FAERS Safety Report 21028511 (Version 1)
Quarter: 2022Q2

REPORT INFORMATION
  Report Type: Spontaneous
  Country: US (occurrence: None)
  Receive Date: 20220630
  Receipt Date: 20220630
  Transmission Date: 20220720
  Serious: Yes (Life-Threatening)
  Sender: FDA-Public Use
  Company Number: None

PATIENT
  Age: 84 Year
  Sex: Female
  Weight: 54.43 kg

DRUGS (11)
  1. ENTRESTO [Suspect]
     Active Substance: SACUBITRIL\VALSARTAN
     Indication: Cardiomyopathy
     Dosage: OTHER FREQUENCY : 1AM, 1PM, 1PILL, 2;?
     Route: 048
     Dates: start: 20220528, end: 20220602
  2. CARVEDILOL [Concomitant]
     Active Substance: CARVEDILOL
  3. HYDROCHLOROTHIAZIDE [Concomitant]
     Active Substance: HYDROCHLOROTHIAZIDE
  4. Areds2 [Concomitant]
  5. CALCIUM [Concomitant]
     Active Substance: CALCIUM
  6. VITAMIN D NOS [Concomitant]
     Active Substance: VITAMIN D NOS
  7. COUMADIN [Concomitant]
     Active Substance: WARFARIN SODIUM
  8. AMITRIPTYLENE HCL [Concomitant]
  9. ATORVASTATIN [Concomitant]
     Active Substance: ATORVASTATIN
  10. VIT [Concomitant]
  11. TYLENOL [Concomitant]
     Active Substance: ACETAMINOPHEN

REACTIONS (3)
  - Depression [None]
  - Suicidal ideation [None]
  - Crying [None]

NARRATIVE: CASE EVENT DATE: 20220529
